FAERS Safety Report 21769622 (Version 1)
Quarter: 2022Q4

REPORT INFORMATION
  Report Type: Spontaneous
  Country: GB (occurrence: GB)
  Receive Date: 20221223
  Receipt Date: 20221223
  Transmission Date: 20230112
  Serious: Yes (Life-Threatening, Hospitalization)
  Sender: FDA-Public Use
  Company Number: GB-MHRA-MED-202212081029598570-MWNFP

PATIENT
  Age: 4 Week
  Sex: Male
  Weight: 4 kg

DRUGS (1)
  1. MORPHINE [Suspect]
     Active Substance: MORPHINE
     Indication: Epidermolysis bullosa
     Dosage: 3.8MG SINGLE DOSE (OVERDOSE) ; ;
     Route: 065
     Dates: start: 20221129

REACTIONS (4)
  - Medication error [Unknown]
  - Lethargy [Recovered/Resolved]
  - Poor feeding infant [Recovered/Resolved]
  - Overdose [Recovered/Resolved]

NARRATIVE: CASE EVENT DATE: 20221129
